FAERS Safety Report 22048930 (Version 1)
Quarter: 2023Q1

REPORT INFORMATION
  Report Type: Spontaneous
  Country: US (occurrence: None)
  Receive Date: 20230228
  Receipt Date: 20230228
  Transmission Date: 20230417
  Serious: Yes (Life-Threatening, Disabling)
  Sender: FDA-Public Use
  Company Number: None

PATIENT
  Age: 62 Year
  Sex: Female
  Weight: 66.6 kg

DRUGS (12)
  1. CLONAZEPAM [Suspect]
     Active Substance: CLONAZEPAM
     Indication: Anxiety
  2. LISINOPRIL [Concomitant]
     Active Substance: LISINOPRIL
  3. HYDROCHLOROTHIAZIDE [Concomitant]
     Active Substance: HYDROCHLOROTHIAZIDE
  4. CLONAZEPAM [Concomitant]
     Active Substance: CLONAZEPAM
  5. MIRTAZAPINE [Concomitant]
     Active Substance: MIRTAZAPINE
  6. clor con(K) [Concomitant]
  7. FLOVENT HFA [Concomitant]
     Active Substance: FLUTICASONE PROPIONATE
  8. FLONASE [Concomitant]
     Active Substance: FLUTICASONE PROPIONATE
  9. VITAMIN C [Concomitant]
     Active Substance: ASCORBIC ACID
  10. VITAMIN D NOS [Suspect]
     Active Substance: VITAMIN D NOS
  11. JWH-018 [Suspect]
     Active Substance: JWH-018
  12. MAGNESIUM [Concomitant]
     Active Substance: MAGNESIUM

REACTIONS (20)
  - Therapy change [None]
  - Cerebral disorder [None]
  - Cognitive disorder [None]
  - Insomnia [None]
  - Impaired work ability [None]
  - Impaired driving ability [None]
  - Anxiety [None]
  - Balance disorder [None]
  - Nausea [None]
  - Confusional state [None]
  - Myalgia [None]
  - Pain [None]
  - Periarthritis [None]
  - Back disorder [None]
  - Musculoskeletal discomfort [None]
  - Gastric disorder [None]
  - Weight increased [None]
  - Therapy change [None]
  - Rebound psychosis [None]
  - Drug dependence [None]

NARRATIVE: CASE EVENT DATE: 20160716
